FAERS Safety Report 11444738 (Version 1)
Quarter: 2015Q3

REPORT INFORMATION
  Report Type: Spontaneous
  Country: CA (occurrence: CA)
  Receive Date: 20150902
  Receipt Date: 20150902
  Transmission Date: 20151125
  Serious: Yes (Other)
  Sender: FDA-Public Use
  Company Number: CA-TEVA-590289ACC

PATIENT
  Age: 68 Year
  Sex: Female
  Weight: 76.27 kg

DRUGS (1)
  1. VENLAFAXINE XR [Suspect]
     Active Substance: VENLAFAXINE HYDROCHLORIDE
     Indication: PRODUCT USED FOR UNKNOWN INDICATION
     Dosage: 300 MILLIGRAM DAILY;
     Route: 048

REACTIONS (3)
  - Condition aggravated [Unknown]
  - Depression [Unknown]
  - Drug ineffective [Unknown]
